FAERS Safety Report 6210102-5 (Version None)
Quarter: 2009Q2

REPORT INFORMATION
  Report Type: 
  Country: None (occurrence: None)
  Receive Date: 20090601
  Receipt Date: 20090522
  Transmission Date: 20091009
  Serious: Yes (Other)
  Sender: FDA-Public Use
  Company Number: US-BIOGENIDEC-2008BI013815

PATIENT
  Age: 57 Year
  Sex: Male

DRUGS (5)
  1. TYSABRI [Suspect]
     Indication: MULTIPLE SCLEROSIS
     Route: 042
     Dates: start: 20071211, end: 20080724
  2. TYSABRI [Suspect]
     Route: 042
     Dates: start: 20071211, end: 20080724
  3. TYSABRI [Suspect]
     Route: 042
     Dates: start: 20071211, end: 20080724
  4. TYSABRI [Suspect]
     Route: 042
     Dates: start: 20071211, end: 20080724
  5. ERBITUX [Concomitant]

REACTIONS (2)
  - METASTATIC SQUAMOUS CELL CARCINOMA [None]
  - VOCAL CORD THICKENING [None]
